FAERS Safety Report 8552297-4 (Version None)
Quarter: 2012Q3

REPORT INFORMATION
  Report Type: 
  Country: None (occurrence: None)
  Receive Date: 20120718
  Receipt Date: 20120704
  Transmission Date: 20120928
  Serious: Yes (Other)
  Sender: FDA-Public Use
  Company Number: 2012MA008455

PATIENT
  Age: 23 Year
  Sex: Female

DRUGS (1)
  1. ACYCLOVIR [Suspect]
     Indication: GENITAL HERPES
     Dosage: 200 MG;PO
     Route: 048
     Dates: start: 20120620, end: 20120625

REACTIONS (1)
  - SKIN EXFOLIATION [None]
